FAERS Safety Report 13778734 (Version 1)
Quarter: 2017Q3

REPORT INFORMATION
  Report Type: Spontaneous
  Country: US (occurrence: US)
  Receive Date: 20170721
  Receipt Date: 20170721
  Transmission Date: 20171127
  Serious: No
  Sender: FDA-Public Use
  Company Number: US-PFIZER INC-2017309974

PATIENT
  Sex: Female

DRUGS (2)
  1. METHOTREXATE SODIUM. [Suspect]
     Active Substance: METHOTREXATE SODIUM
     Dosage: UNK
  2. XELJANZ XR [Suspect]
     Active Substance: TOFACITINIB CITRATE
     Dosage: 11 MG, UNK

REACTIONS (13)
  - Dry eye [Recovering/Resolving]
  - Abdominal pain [Unknown]
  - Lordosis [Unknown]
  - Joint stiffness [Unknown]
  - Joint range of motion decreased [Unknown]
  - Spinal pain [Unknown]
  - Arthralgia [Unknown]
  - Rash [Unknown]
  - Liver function test increased [Unknown]
  - Hepatic steatosis [Unknown]
  - Muscle spasms [Unknown]
  - Pelvic pain [Unknown]
  - Erythema [Unknown]
